FAERS Safety Report 20389806 (Version 1)
Quarter: 2022Q1

REPORT INFORMATION
  Report Type: Spontaneous
  Country: US (occurrence: None)
  Receive Date: 20220128
  Receipt Date: 20220128
  Transmission Date: 20220424
  Serious: No
  Sender: FDA-Public Use
  Company Number: US-Ultragenyx Pharmaceutical Inc.-US-UGNX-21-00318

PATIENT
  Sex: Female
  Weight: 41.6 kg

DRUGS (4)
  1. DOJOLVI [Suspect]
     Active Substance: TRIHEPTANOIN
     Indication: Glucose transporter type 1 deficiency syndrome
     Dosage: 10 ML, THREE TIMES DAILY, VIA G-TUBE
     Dates: start: 20210806
  2. DOJOLVI [Suspect]
     Active Substance: TRIHEPTANOIN
     Dosage: 10 ML, THREE TIMES DAILY, VIA G-TUBE
     Dates: start: 20210803
  3. DOJOLVI [Suspect]
     Active Substance: TRIHEPTANOIN
     Dosage: 10ML THREE TIMES DAILY VIA G TUBE
     Dates: start: 20210806
  4. DOJOLVI [Suspect]
     Active Substance: TRIHEPTANOIN
     Dates: start: 20211222

REACTIONS (3)
  - Drug intolerance [Unknown]
  - Vomiting [Unknown]
  - Off label use [Unknown]
